FAERS Safety Report 8544377-4 (Version None)
Quarter: 2012Q3

REPORT INFORMATION
  Report Type: 
  Country: None (occurrence: None)
  Receive Date: 20120717
  Receipt Date: 20120706
  Transmission Date: 20120928
  Serious: Yes (Other)
  Sender: FDA-Public Use
  Company Number: JPI-P-022555

PATIENT
  Age: 45 Year
  Sex: Female

DRUGS (4)
  1. XYREM [Suspect]
     Indication: NARCOLEPSY
     Dosage: 4.5;9 GM (2.25 GM, 2 IN 1 D), ORAL
     Route: 048
     Dates: start: 20110101, end: 20110101
  2. XYREM [Suspect]
     Indication: NARCOLEPSY
     Dosage: 4.5;9 GM (2.25 GM, 2 IN 1 D), ORAL
     Route: 048
     Dates: start: 20110810, end: 20120601
  3. XYREM [Suspect]
     Indication: NARCOLEPSY
     Dosage: 4.5;9 GM (2.25 GM, 2 IN 1 D), ORAL
     Route: 048
     Dates: start: 20120701
  4. XYREM [Suspect]
     Indication: NARCOLEPSY
     Dosage: 4.5;9 GM (2.25 GM, 2 IN 1 D), ORAL
     Route: 048
     Dates: start: 20110629

REACTIONS (3)
  - PROCEDURAL PAIN [None]
  - BACK PAIN [None]
  - VAGINAL NEOPLASM [None]
